FAERS Safety Report 25187684 (Version 1)
Quarter: 2025Q2

REPORT INFORMATION
  Report Type: Spontaneous
  Country: DE (occurrence: DE)
  Receive Date: 20250411
  Receipt Date: 20250411
  Transmission Date: 20250716
  Serious: Yes (Disabling, Other)
  Sender: ALKEM
  Company Number: DE-ALKEM LABORATORIES LIMITED-DE-ALKEM-2025-03649

PATIENT
  Age: 55 Year
  Sex: Male
  Weight: 100 kg

DRUGS (6)
  1. PREGABALIN [Suspect]
     Active Substance: PREGABALIN
     Indication: Restless legs syndrome
     Dosage: 450 MILLIGRAM, QD (CAPSULE) (EVERY 1 DAY)
     Route: 065
  2. CANNABIS SATIVA SUBSP. INDICA TOP [Suspect]
     Active Substance: CANNABIS SATIVA SUBSP. INDICA TOP
     Indication: Restless legs syndrome
     Dosage: 3 GRAM, QD (EEVRY 1 DAY)
     Route: 065
  3. PRAMIPEXOLE [Suspect]
     Active Substance: PRAMIPEXOLE
     Indication: Restless legs syndrome
     Route: 065
  4. NALOXONE HYDROCHLORIDE\OXYCODONE HYDROCHLORIDE [Suspect]
     Active Substance: NALOXONE HYDROCHLORIDE\OXYCODONE HYDROCHLORIDE
     Indication: Pain
     Route: 065
  5. .DELTA.9-TETRAHYDROCANNABINOL\CANNABIDIOL\HERBALS [Suspect]
     Active Substance: .DELTA.9-TETRAHYDROCANNABINOL\CANNABIDIOL\HERBALS
     Indication: Restless legs syndrome
     Dosage: 5 MILLILITER, QD (EVERY 1 DAY)
     Route: 065
  6. HEROIN [Concomitant]
     Active Substance: DIAMORPHINE
     Indication: Product used for unknown indication
     Route: 065

REACTIONS (19)
  - Osteonecrosis of jaw [Not Recovered/Not Resolved]
  - Teeth brittle [Unknown]
  - Metastases to lymph nodes [Unknown]
  - Disability [Unknown]
  - Testis cancer [Unknown]
  - Polyneuropathy [Unknown]
  - Epilepsy [Not Recovered/Not Resolved]
  - Abscess [Not Recovered/Not Resolved]
  - Photosensitivity reaction [Not Recovered/Not Resolved]
  - Ageusia [Not Recovered/Not Resolved]
  - Dependence [Not Recovered/Not Resolved]
  - Drug dependence [Unknown]
  - Muscle spasticity [Unknown]
  - Restless legs syndrome [Unknown]
  - Impaired quality of life [Unknown]
  - Depression [Unknown]
  - Pain [Unknown]
  - Headache [Unknown]
  - Vomiting [Unknown]

NARRATIVE: CASE EVENT DATE: 20170101
